FAERS Safety Report 9692766 (Version 2)
Quarter: 2013Q4

REPORT INFORMATION
  Report Type: Report from Study
  Country: BE (occurrence: BE)
  Receive Date: 20131118
  Receipt Date: 20131118
  Transmission Date: 20140711
  Serious: Yes (Death, Hospitalization, Other)
  Sender: FDA-Public Use
  Company Number: BE-BAYER-2013-130138

PATIENT
  Age: 76 Year
  Sex: Female

DRUGS (1)
  1. NEXAVAR [Suspect]
     Indication: HEPATOCELLULAR CARCINOMA
     Dosage: DAILY DOSE 800 MG
     Route: 048
     Dates: start: 20131022, end: 20131024

REACTIONS (8)
  - Pain [None]
  - Haemorrhage [None]
  - General physical health deterioration [None]
  - Diarrhoea [None]
  - Nausea [None]
  - Decreased appetite [None]
  - Vomiting [None]
  - Death [Fatal]
